FAERS Safety Report 5832789-9 (Version None)
Quarter: 2008Q3

REPORT INFORMATION
  Report Type: 
  Country: None (occurrence: None)
  Receive Date: 20080804
  Receipt Date: 20080725
  Transmission Date: 20090109
  Serious: Yes (Hospitalization)
  Sender: FDA-Public Use
  Company Number: US-JNJFOC-20080706745

PATIENT
  Age: 39 Year
  Sex: Female

DRUGS (4)
  1. TOPAMAX [Suspect]
     Indication: PAIN
  2. AVONEX [Concomitant]
     Route: 030
  3. AVONEX [Concomitant]
     Indication: MULTIPLE SCLEROSIS
     Route: 030
  4. ZOLOFT [Concomitant]
     Indication: DEPRESSION

REACTIONS (5)
  - AFFECT LABILITY [None]
  - DEPRESSION [None]
  - DRUG ADMINISTRATION ERROR [None]
  - SOMNOLENCE [None]
  - SUICIDAL IDEATION [None]
